FAERS Safety Report 24261782 (Version 2)
Quarter: 2024Q3

REPORT INFORMATION
  Report Type: Spontaneous
  Country: US (occurrence: None)
  Receive Date: 20240829
  Receipt Date: 20240905
  Transmission Date: 20241017
  Serious: No
  Sender: ASTRAZENECA
  Company Number: 2024A194526

PATIENT
  Age: 74 Year
  Sex: Female

DRUGS (1)
  1. BUDESONIDE\FORMOTEROL [Suspect]
     Active Substance: BUDESONIDE\FORMOTEROL
     Indication: Asthma
     Dosage: 160UG/INHAL
     Route: 055

REACTIONS (5)
  - Supraventricular tachycardia [Unknown]
  - Eczema [Unknown]
  - Eosinophil count increased [Unknown]
  - Telangiectasia [Unknown]
  - Tachycardia [Unknown]

NARRATIVE: CASE EVENT DATE: 20240101
